FAERS Safety Report 5637745-1 (Version None)
Quarter: 2008Q1

REPORT INFORMATION
  Report Type: 
  Country: None (occurrence: None)
  Receive Date: 20080219
  Receipt Date: 20080130
  Transmission Date: 20080703
  Serious: Yes (Other)
  Sender: FDA-Public Use
  Company Number: 8029544

PATIENT
  Sex: Female

DRUGS (7)
  1. KEPPRA [Suspect]
     Indication: EPILEPSY
     Dosage: 750 MG /D TRP
     Route: 064
     Dates: start: 20050128, end: 20050401
  2. KEPPRA [Suspect]
     Indication: EPILEPSY
     Dosage: 1000 MG /D TRP
     Route: 064
     Dates: start: 20050401, end: 20050601
  3. KEPPRA [Suspect]
     Indication: EPILEPSY
     Dosage: 1250 MG /D TRP
     Route: 064
     Dates: start: 20050601, end: 20051114
  4. UROCIT-K [Concomitant]
  5. FOLIC ACID [Concomitant]
  6. VITAMIN TAB [Concomitant]
  7. VITAMIN K [Concomitant]

REACTIONS (3)
  - DRUG EXPOSURE DURING PREGNANCY [None]
  - EXPRESSIVE LANGUAGE DISORDER [None]
  - FINE MOTOR DELAY [None]
